FAERS Safety Report 5474722-8 (Version None)
Quarter: 2007Q3

REPORT INFORMATION
  Report Type: 
  Country: None (occurrence: None)
  Receive Date: 20070927
  Receipt Date: 20070927
  Transmission Date: 20080115
  Serious: Yes (Life-Threatening, Hospitalization)
  Sender: FDA-Public Use
  Company Number: None

PATIENT
  Age: 74 Year
  Sex: Female
  Weight: 59 kg

DRUGS (8)
  1. LYRICA [Suspect]
     Indication: NERVE COMPRESSION
     Dosage: 75 MG DAILY PO
     Route: 048
     Dates: start: 20070807, end: 20070815
  2. LASIX [Concomitant]
  3. COUMADIN [Concomitant]
  4. LEXAPRO [Concomitant]
  5. ATIVAN [Concomitant]
  6. COLACE [Concomitant]
  7. POTASSIUM CHLORIDE [Concomitant]
  8. ACIPHEX [Concomitant]

REACTIONS (18)
  - ABDOMINAL DISTENSION [None]
  - ABDOMINAL PAIN [None]
  - ABDOMINAL TENDERNESS [None]
  - AORTIC VALVE INCOMPETENCE [None]
  - ASCITES [None]
  - ASTHENIA [None]
  - CARDIOMEGALY [None]
  - DIZZINESS [None]
  - HYPOTENSION [None]
  - JUGULAR VEIN DISTENSION [None]
  - LOSS OF CONSCIOUSNESS [None]
  - MENTAL STATUS CHANGES [None]
  - MITRAL VALVE CALCIFICATION [None]
  - OEDEMA PERIPHERAL [None]
  - PLEURAL EFFUSION [None]
  - PULMONARY OEDEMA [None]
  - PULSE ABNORMAL [None]
  - TRICUSPID VALVE INCOMPETENCE [None]
